FAERS Safety Report 5016736-8 (Version None)
Quarter: 2006Q2

REPORT INFORMATION
  Report Type: 
  Country: None (occurrence: None)
  Receive Date: 20060602
  Receipt Date: 20060130
  Transmission Date: 20061013
  Serious: No
  Sender: FDA-Public Use
  Company Number: US-GLAXOSMITHKLINE-A0591472A

PATIENT
  Age: 2 Month
  Sex: Male

DRUGS (4)
  1. AUGMENTIN '125' [Suspect]
     Indication: TRACHEITIS
     Dosage: 68MG TWICE PER DAY
     Route: 042
  2. ZANTAC [Suspect]
     Dosage: 13.5ML THREE TIMES PER DAY
     Route: 042
  3. METOCLOPRAMIDE [Concomitant]
  4. LASIX [Concomitant]

REACTIONS (1)
  - DRUG ADMINISTRATION ERROR [None]
